FAERS Safety Report 23447948 (Version 1)
Quarter: 2024Q1

REPORT INFORMATION
  Report Type: Spontaneous
  Country: US (occurrence: None)
  Receive Date: 20240126
  Receipt Date: 20240126
  Transmission Date: 20240409
  Serious: Yes (Death)
  Sender: FDA-Public Use
  Company Number: None

PATIENT
  Age: 55 Year
  Sex: Female

DRUGS (7)
  1. SOFOSBUVIR\VELPATASVIR [Suspect]
     Active Substance: SOFOSBUVIR\VELPATASVIR
     Dosage: FREQUENCY : DAILY;?
     Route: 048
  2. FOLIC ACID [Concomitant]
     Active Substance: FOLIC ACID
  3. MELATONIN [Concomitant]
     Active Substance: MELATONIN
  4. VENTOLIN HFA INH [Concomitant]
  5. PROPRANOLOL HYDROCHLORIDE [Concomitant]
     Active Substance: PROPRANOLOL HYDROCHLORIDE
  6. KETOTIFEN 0.025% OPTH SOLUTION [Concomitant]
  7. LACTULOSE [Concomitant]
     Active Substance: LACTULOSE

REACTIONS (1)
  - Death [None]

NARRATIVE: CASE EVENT DATE: 20240125
